FAERS Safety Report 7242197-4 (Version None)
Quarter: 2011Q1

REPORT INFORMATION
  Report Type: 
  Country: None (occurrence: None)
  Receive Date: 20110124
  Receipt Date: 20100525
  Transmission Date: 20110831
  Serious: Yes (Other)
  Sender: FDA-Public Use
  Company Number: PHHY2010TW90495

PATIENT
  Age: 7 Year
  Sex: Male

DRUGS (3)
  1. METHYLPHENIDATE [Suspect]
     Indication: DISTURBANCE IN ATTENTION
     Dosage: 5 MG, UNK
  2. METHYLPHENIDATE [Suspect]
     Indication: LEARNING DISABILITY
     Dosage: 10 MG, UNK
  3. METHYLPHENIDATE [Suspect]
     Dosage: 7.5 MG, UNK

REACTIONS (3)
  - SOMNOLENCE [None]
  - PSYCHOMOTOR RETARDATION [None]
  - DECREASED APPETITE [None]
